FAERS Safety Report 25085163 (Version 1)
Quarter: 2025Q1

REPORT INFORMATION
  Report Type: Spontaneous
  Country: PL (occurrence: PL)
  Receive Date: 20250317
  Receipt Date: 20250317
  Transmission Date: 20250409
  Serious: Yes (Other)
  Sender: ROCHE
  Company Number: PL-ROCHE-10000226153

PATIENT
  Sex: Female

DRUGS (1)
  1. TECENTRIQ [Suspect]
     Active Substance: ATEZOLIZUMAB
     Indication: Lung neoplasm malignant
     Dosage: ON 02-JAN-2025, SHE RECEIVED HER MOST RECENT DOSE OF ATEZOLIZUMAB.
     Route: 042
     Dates: start: 20240422

REACTIONS (1)
  - Small cell lung cancer [Unknown]
